FAERS Safety Report 8847976 (Version 1)
Quarter: 2012Q4

REPORT INFORMATION
  Report Type: 
  Country: PT (occurrence: PT)
  Receive Date: 20121018
  Receipt Date: 20121018
  Transmission Date: 20130627
  Serious: Yes (Other)
  Sender: FDA-Public Use
  Company Number: PT-ROCHE-1143370

PATIENT
  Age: 28 Year
  Sex: Male

DRUGS (2)
  1. CEFTRIAXONE [Suspect]
     Indication: SEXUALLY TRANSMITTED DISEASE
     Dosage: single dose
     Route: 030
  2. CEFTRIAXONE [Suspect]
     Indication: SYPHILIS

REACTIONS (1)
  - Jarisch-Herxheimer reaction [Unknown]
